FAERS Safety Report 16725899 (Version 2)
Quarter: 2019Q3

REPORT INFORMATION
  Report Type: Spontaneous
  Country: HK (occurrence: HK)
  Receive Date: 20190821
  Receipt Date: 20190913
  Transmission Date: 20191005
  Serious: Yes (Hospitalization, Other)
  Sender: FDA-Public Use
  Company Number: HK-ASTRAZENECA-2019SF16039

PATIENT
  Age: 48 Year
  Sex: Female

DRUGS (3)
  1. LYNPARZA [Suspect]
     Active Substance: OLAPARIB
     Route: 048
  2. LYNPARZA [Suspect]
     Active Substance: OLAPARIB
     Route: 048
     Dates: start: 201703
  3. LYNPARZA [Suspect]
     Active Substance: OLAPARIB
     Route: 048
     Dates: end: 201905

REACTIONS (10)
  - Hot flush [Unknown]
  - Oedema peripheral [Unknown]
  - Pain [Unknown]
  - Bone marrow failure [Unknown]
  - Thrombocytopenia [Not Recovered/Not Resolved]
  - Dyspnoea [Unknown]
  - Dizziness [Unknown]
  - Fatigue [Unknown]
  - Nausea [Unknown]
  - Muscle spasms [Unknown]

NARRATIVE: CASE EVENT DATE: 201703
